FAERS Safety Report 22212108 (Version 1)
Quarter: 2023Q2

REPORT INFORMATION
  Report Type: Other
  Country: US (occurrence: None)
  Receive Date: 20230414
  Receipt Date: 20230414
  Transmission Date: 20230721
  Serious: Yes (Hospitalization)
  Sender: FDA-Public Use
  Company Number: US-ROCHE-3327951

PATIENT
  Age: 49 Year
  Sex: Female

DRUGS (1)
  1. RITUXAN [Suspect]
     Active Substance: RITUXIMAB
     Indication: Dermatomyositis
     Dosage: INFUSE 1000 MG DAY 1 AND DAY 14 EVERY 3 MONTHS
     Route: 065
     Dates: start: 202208, end: 202208

REACTIONS (5)
  - Respiratory failure [Not Recovered/Not Resolved]
  - Off label use [Unknown]
  - Malaise [Unknown]
  - Illness [Unknown]
  - Lung disorder [Unknown]

NARRATIVE: CASE EVENT DATE: 20230322
